FAERS Safety Report 6237689-0 (Version None)
Quarter: 2009Q2

REPORT INFORMATION
  Report Type: 
  Country: None (occurrence: None)
  Receive Date: 20090617
  Receipt Date: 20090602
  Transmission Date: 20091009
  Serious: Yes (Hospitalization)
  Sender: FDA-Public Use
  Company Number: APP200801023

PATIENT
  Age: 45 Year
  Sex: Male
  Weight: 77 kg

DRUGS (10)
  1. HEPARIN SODIUM INJECTION [Suspect]
     Indication: ANTICOAGULANT THERAPY
     Dosage: 70 U/KG, INTRAVENOUS BOLUS
     Route: 040
     Dates: start: 20080925, end: 20080925
  2. ASPIRIN [Concomitant]
  3. PLAVIX [Concomitant]
  4. METOPROLOL SUCCINATE [Concomitant]
  5. SIMVASTATIN [Suspect]
  6. VERSED [Concomitant]
  7. FENTANYL-100 [Concomitant]
  8. NITROGLYCERIN [Concomitant]
  9. SODIUM CHLORIDE [Concomitant]
  10. LISINOPRIL [Concomitant]

REACTIONS (9)
  - ANAEMIA [None]
  - ANGINA PECTORIS [None]
  - BLOOD POTASSIUM ABNORMAL [None]
  - HEADACHE [None]
  - HIGH DENSITY LIPOPROTEIN DECREASED [None]
  - HYPERHIDROSIS [None]
  - LOW DENSITY LIPOPROTEIN INCREASED [None]
  - MYOCARDIAL ISCHAEMIA [None]
  - SINGLE PHOTON EMISSION COMPUTERISED TOMOGRAM ABNORMAL [None]
